FAERS Safety Report 22266012 (Version 1)
Quarter: 2023Q2

REPORT INFORMATION
  Report Type: Spontaneous
  Country: US (occurrence: None)
  Receive Date: 20230428
  Receipt Date: 20230428
  Transmission Date: 20230721
  Serious: Yes (Other)
  Sender: FDA-Public Use
  Company Number: 2019SE12055

PATIENT
  Age: 26409 Day
  Sex: Female
  Weight: 77.1 kg

DRUGS (29)
  1. PRILOSEC [Suspect]
     Active Substance: OMEPRAZOLE MAGNESIUM
     Indication: Gastrooesophageal reflux disease
     Route: 048
     Dates: start: 2006, end: 2008
  2. PRILOSEC OTC [Suspect]
     Active Substance: OMEPRAZOLE MAGNESIUM
     Route: 048
     Dates: start: 20120101, end: 20170101
  3. PREVACID [Suspect]
     Active Substance: LANSOPRAZOLE
     Route: 065
     Dates: start: 20130101, end: 20170101
  4. PREVACID 24 HR [Suspect]
     Active Substance: LANSOPRAZOLE
     Indication: Gastrooesophageal reflux disease
     Route: 065
     Dates: start: 2012, end: 2017
  5. ATIVAN [Concomitant]
     Active Substance: LORAZEPAM
     Indication: Anxiety
     Dates: start: 2002
  6. LISINOPRIL [Concomitant]
     Active Substance: LISINOPRIL
     Indication: Hypertension
     Dates: start: 2009
  7. ULORIC ACID [Concomitant]
     Indication: Renal disorder
     Dates: start: 2018
  8. ALLOPURINOL [Concomitant]
     Active Substance: ALLOPURINOL
     Indication: Renal disorder
     Dates: start: 2017, end: 2018
  9. SIMVASTATIN [Concomitant]
     Active Substance: SIMVASTATIN
     Indication: Blood cholesterol increased
     Dates: start: 2009
  10. AMLODIPINE [Concomitant]
     Active Substance: AMLODIPINE BESYLATE
     Indication: Hypertension
     Dates: start: 2009
  11. IBUPROFEN [Concomitant]
     Active Substance: IBUPROFEN
     Indication: Pain
     Dosage: AS NEEDED UNTIL 2017
  12. TYLENOL [Concomitant]
     Active Substance: ACETAMINOPHEN
     Indication: Pain
     Dates: start: 2017
  13. VITAMINS [Concomitant]
     Active Substance: VITAMINS
     Indication: Product prescribing error
     Dates: start: 2000
  14. ZANTAC [Concomitant]
     Active Substance: RANITIDINE HYDROCHLORIDE
  15. XARELTO [Concomitant]
     Active Substance: RIVAROXABAN
  16. LORAZEPAM [Concomitant]
     Active Substance: LORAZEPAM
  17. PREDNISONE [Concomitant]
     Active Substance: PREDNISONE
  18. TRAMADOL [Concomitant]
     Active Substance: TRAMADOL
  19. MOBIC [Concomitant]
     Active Substance: MELOXICAM
  20. CITALOPRAM [Concomitant]
     Active Substance: CITALOPRAM HYDROBROMIDE
  21. VERAPAMIL [Concomitant]
     Active Substance: VERAPAMIL HYDROCHLORIDE
  22. CEPHALEXIN [Concomitant]
     Active Substance: CEPHALEXIN
  23. ACYCLOVIR [Concomitant]
     Active Substance: ACYCLOVIR
  24. BUSPIRONE [Concomitant]
     Active Substance: BUSPIRONE HYDROCHLORIDE
  25. LOTREL [Concomitant]
     Active Substance: AMLODIPINE BESYLATE\BENAZEPRIL HYDROCHLORIDE
  26. MELOXICAM [Concomitant]
     Active Substance: MELOXICAM
  27. HYDROCODONE [Concomitant]
     Active Substance: HYDROCODONE
  28. MIRTAZAPINE [Concomitant]
     Active Substance: MIRTAZAPINE
  29. ZOCOR [Concomitant]
     Active Substance: SIMVASTATIN

REACTIONS (4)
  - Chronic kidney disease [Not Recovered/Not Resolved]
  - Renal failure [Unknown]
  - Acute kidney injury [Unknown]
  - Chronic kidney disease-mineral and bone disorder [Unknown]

NARRATIVE: CASE EVENT DATE: 20090828
